FAERS Safety Report 15331912 (Version 1)
Quarter: 2018Q3

REPORT INFORMATION
  Report Type: Spontaneous
  Country: HU (occurrence: HU)
  Receive Date: 20180829
  Receipt Date: 20180829
  Transmission Date: 20181010
  Serious: Yes (Other)
  Sender: FDA-Public Use
  Company Number: HU-PFIZER INC-2018342855

PATIENT
  Age: 53 Year
  Sex: Male

DRUGS (8)
  1. SOLU?MEDROL [Suspect]
     Active Substance: METHYLPREDNISOLONE SODIUM SUCCINATE
     Indication: PREMEDICATION
     Dosage: 100 MG, CYCLIC
     Route: 042
  2. ONDANSETRON KABI [Suspect]
     Active Substance: ONDANSETRON
     Indication: PREMEDICATION
     Dosage: 8 MG, CYCLIC
     Route: 042
  3. CALCIUM FOLINATE [Concomitant]
     Active Substance: LEUCOVORIN CALCIUM
     Indication: COLON CANCER
     Dosage: 400MG ON BOTH TREATMENT DAYS OF EACH TREATMENT CYCLE
     Route: 042
     Dates: start: 20180216
  4. MAGNEROT CLASSIC [Concomitant]
     Indication: PROPHYLAXIS
     Dosage: NUMBER OF SEPARATE DOSAGES:1, NUMBER OF UNITS IN THE INTERVAL: 0.5, DEFINITION OF THE INTERVAL: DAY
     Route: 048
  5. FLUOROURACIL. [Suspect]
     Active Substance: FLUOROURACIL
     Indication: COLON CANCER
     Dosage: 800MG ON BOTH TREATMENT DAYS OF EACH TREATMENT CYCLE
     Route: 040
     Dates: start: 20180216, end: 20180713
  6. OXALIPLATIN. [Concomitant]
     Active Substance: OXALIPLATIN
     Indication: COLON CANCER
     Dosage: 130 MG, 2X/WEEK
     Route: 042
     Dates: start: 20180216
  7. FLUOROURACIL. [Suspect]
     Active Substance: FLUOROURACIL
     Dosage: 1200MG OVER 22HRS ON BOTH TREATMENT DAYS OF EACH TREATMENT CYCLE
     Route: 041
     Dates: start: 20180216, end: 20180713
  8. BENFOGAMMA [Concomitant]
     Indication: PROPHYLAXIS
     Dosage: NUMBER OF SEPARATE DOSAGES:1, NUMBER OF UNITS IN THE INTERVAL: 0.5, DEFINITION OF THE INTERVAL: DAY
     Route: 048

REACTIONS (5)
  - Malaise [Recovered/Resolved]
  - Generalised erythema [Recovered/Resolved]
  - Circulatory collapse [Recovered/Resolved]
  - Hypotension [Recovered/Resolved]
  - Feeling hot [Recovered/Resolved]

NARRATIVE: CASE EVENT DATE: 20180713
